FAERS Safety Report 8245584-0 (Version None)
Quarter: 2012Q1

REPORT INFORMATION
  Report Type: 
  Country: None (occurrence: None)
  Receive Date: 20120330
  Receipt Date: 20120319
  Transmission Date: 20120608
  Serious: Yes (Hospitalization, Other)
  Sender: FDA-Public Use
  Company Number: DE-BRISTOL-MYERS SQUIBB COMPANY-16440091

PATIENT
  Age: 49 Year
  Sex: Male
  Weight: 73 kg

DRUGS (3)
  1. GEMCITABINE [Suspect]
     Indication: NON-SMALL CELL LUNG CANCER
     Dosage: DAY 1 AND DAY 8 OF EACH 3 WEEK CYCLE;LAST INFUSION ON 21FEB12 ;NO OF INF:6
     Route: 042
     Dates: start: 20120113
  2. CETUXIMAB [Suspect]
     Indication: NON-SMALL CELL LUNG CANCER
     Dosage: NO OF INF:8 CETUXIMAB 5MG/ML IV INF 03JAN-21FEB12,280MG/M2 06MAR12-ONG
     Route: 042
     Dates: start: 20120103
  3. CISPLATIN [Suspect]
     Indication: NON-SMALL CELL LUNG CANCER
     Dosage: LAST INFUSION ON 14FEB12 ;NO OF INF:3
     Route: 042
     Dates: start: 20120103

REACTIONS (2)
  - ATRIAL FIBRILLATION [None]
  - PULMONARY EMBOLISM [None]
